FAERS Safety Report 15681955 (Version 1)
Quarter: 2018Q4

REPORT INFORMATION
  Report Type: Spontaneous
  Country: CN (occurrence: CN)
  Receive Date: 20181203
  Receipt Date: 20181203
  Transmission Date: 20190205
  Serious: Yes (Other)
  Sender: FDA-Public Use
  Company Number: CN-PFIZER INC-2018490245

PATIENT
  Age: 50 Year
  Sex: Male

DRUGS (6)
  1. PACLITAXEL. [Suspect]
     Active Substance: PACLITAXEL
     Dosage: 240 MG, CYCLIC (ON D1, FOLLOWED BY 1 WEEK OF REST)
     Route: 041
     Dates: start: 20140823
  2. TEGAFUR, GIMERACIL, OTERACIL POTASSIUM [Suspect]
     Active Substance: GIMERACIL\OTERACIL\TEGAFUR
     Dosage: 60 MG, CYCLIC (ON D1 TO 14, FOLLOWED BY 1 WEEK OF REST)
     Route: 048
     Dates: start: 20140823
  3. TEGAFUR, GIMERACIL, OTERACIL POTASSIUM [Suspect]
     Active Substance: GIMERACIL\OTERACIL\TEGAFUR
     Dosage: 60 MG, CYCLIC (ON D1 TO 14, FOLLOWED BY 1 WEEK OF REST)
     Route: 048
     Dates: start: 20140730
  4. PACLITAXEL. [Suspect]
     Active Substance: PACLITAXEL
     Dosage: 240 MG, CYCLIC (ON D1, FOLLOWED BY 1 WEEK OF REST)
     Route: 041
     Dates: start: 20140730
  5. TEGAFUR, GIMERACIL, OTERACIL POTASSIUM [Suspect]
     Active Substance: GIMERACIL\OTERACIL\TEGAFUR
     Indication: ADENOCARCINOMA GASTRIC
     Dosage: 60 MG, CYCLIC (ON D1 TO 14, FOLLOWED BY 1 WEEK OF REST)
     Route: 048
     Dates: start: 20140707
  6. PACLITAXEL. [Suspect]
     Active Substance: PACLITAXEL
     Indication: ADENOCARCINOMA GASTRIC
     Dosage: 240 MG, CYCLIC (ON D1, FOLLOWED BY 1 WEEK OF REST)
     Route: 041
     Dates: start: 20140707

REACTIONS (1)
  - Bone marrow failure [Unknown]

NARRATIVE: CASE EVENT DATE: 2014
